FAERS Safety Report 7405462-3 (Version None)
Quarter: 2011Q2

REPORT INFORMATION
  Report Type: 
  Country: None (occurrence: None)
  Receive Date: 20110404
  Receipt Date: 20110328
  Transmission Date: 20111010
  Serious: Yes (Hospitalization, Other)
  Sender: FDA-Public Use
  Company Number: 2011SP011303

PATIENT
  Age: 27 Year
  Sex: Female

DRUGS (2)
  1. MIRTAZAPINE [Suspect]
     Indication: DEPRESSION
     Dosage: 15MG,30 MG, QD, PO
     Route: 048
     Dates: start: 20100609, end: 20100622
  2. MIRTAZAPINE [Suspect]
     Indication: DEPRESSION
     Dosage: 15MG,30 MG, QD, PO
     Route: 048
     Dates: start: 20100623

REACTIONS (13)
  - SEROTONIN SYNDROME [None]
  - MOVEMENT DISORDER [None]
  - APRAXIA [None]
  - RESTLESSNESS [None]
  - PAIN IN EXTREMITY [None]
  - HYPERHIDROSIS [None]
  - CONFUSIONAL STATE [None]
  - AGITATION [None]
  - ALTERED STATE OF CONSCIOUSNESS [None]
  - AMNESIA [None]
  - DYSPHORIA [None]
  - AGGRESSION [None]
  - DYSTHYMIC DISORDER [None]
